FAERS Safety Report 7600319-7 (Version None)
Quarter: 2011Q2

REPORT INFORMATION
  Report Type: 
  Country: None (occurrence: None)
  Receive Date: 20110629
  Receipt Date: 20110615
  Transmission Date: 20111010
  Serious: Yes (Hospitalization)
  Sender: FDA-Public Use
  Company Number: 2011S1000824

PATIENT
  Age: 74 Year
  Sex: Male

DRUGS (7)
  1. FAMOTIDINE [Concomitant]
  2. MUCOSTA [Concomitant]
  3. ASPIRIN [Concomitant]
  4. LIVALO [Suspect]
     Indication: HYPERCHOLESTEROLAEMIA
     Dosage: 1 MG;1X;PO
     Route: 048
     Dates: start: 20110128, end: 20110510
  5. URSO /00465701/ [Concomitant]
  6. ISOSORBIDE DINITRATE [Concomitant]
  7. INDERAL /00030002/ [Concomitant]

REACTIONS (7)
  - SOMNOLENCE [None]
  - THROMBOCYTOPENIA [None]
  - ASPARTATE AMINOTRANSFERASE INCREASED [None]
  - GAMMA-GLUTAMYLTRANSFERASE INCREASED [None]
  - RASH [None]
  - MALAISE [None]
  - HEPATIC FUNCTION ABNORMAL [None]
